FAERS Safety Report 8008632-9 (Version None)
Quarter: 2011Q4

REPORT INFORMATION
  Report Type: 
  Country: None (occurrence: None)
  Receive Date: 20111227
  Receipt Date: 20111219
  Transmission Date: 20120403
  Serious: Yes (Other)
  Sender: FDA-Public Use
  Company Number: US-JNJFOC-20070400685

PATIENT
  Sex: Male
  Weight: 78.47 kg

DRUGS (60)
  1. DOXIL [Suspect]
     Indication: BURKITT'S LYMPHOMA
     Route: 042
     Dates: end: 20070509
  2. RITUXIMAB [Suspect]
     Indication: BURKITT'S LYMPHOMA
     Route: 042
  3. RITUXIMAB [Suspect]
     Route: 042
  4. RITUXIMAB [Suspect]
     Route: 042
     Dates: start: 20070206
  5. RITUXIMAB [Suspect]
     Route: 042
     Dates: end: 20070509
  6. IFOSFAMIDE [Suspect]
     Route: 065
     Dates: start: 20070206
  7. ACYCLOVIR [Concomitant]
     Route: 042
  8. DEXTROSE [Concomitant]
     Route: 042
  9. ALLOPURINOL [Concomitant]
     Route: 048
  10. OCEAN [Concomitant]
     Dosage: AS NECESSARY, 1 SPRAY IN EACH NOSTRIL
     Route: 045
  11. POTASSIUM CHLORIDE [Concomitant]
     Route: 048
  12. DOXIL [Suspect]
     Dosage: 40MG/M2
     Route: 042
  13. VINCRISTINE [Suspect]
     Route: 065
     Dates: start: 20070202
  14. ETOPOSIDE [Suspect]
     Route: 065
     Dates: end: 20070509
  15. CYTARABINE [Suspect]
     Route: 065
  16. COMPAZINE [Concomitant]
     Dosage: AS NECESSARY
     Route: 048
  17. DOXIL [Suspect]
     Dosage: 40MG/M2
     Route: 042
  18. METHOTREXATE [Suspect]
     Route: 042
  19. ETOPOSIDE [Suspect]
     Indication: BURKITT'S LYMPHOMA
     Route: 065
     Dates: start: 20070206
  20. CEFEPIME [Concomitant]
     Route: 042
  21. AMBIEN [Concomitant]
     Dosage: AS NECESSARY
     Route: 048
  22. DOXIL [Suspect]
     Dosage: 40MG/M2
     Route: 042
     Dates: start: 20070206
  23. CYCLOPHOSPHAMIDE [Suspect]
     Route: 065
  24. CYCLOPHOSPHAMIDE [Suspect]
     Route: 065
     Dates: start: 20070206
  25. VINCRISTINE [Suspect]
     Route: 065
  26. METHOTREXATE [Suspect]
     Indication: BURKITT'S LYMPHOMA
     Route: 042
  27. IFOSFAMIDE [Suspect]
     Indication: BURKITT'S LYMPHOMA
     Route: 065
  28. IFOSFAMIDE [Suspect]
     Route: 065
     Dates: end: 20070509
  29. METHOTREXATE [Concomitant]
     Route: 037
  30. HEPARIN [Concomitant]
     Dosage: 100 UNITS/ML FOR LOCK FLUSH
     Route: 042
  31. ACTIVAN [Concomitant]
     Dosage: AS NECESSARY
     Route: 042
  32. SALIVART [Concomitant]
     Route: 048
  33. POTASSIUM CHLORIDE [Concomitant]
     Route: 042
  34. CYCLOPHOSPHAMIDE [Suspect]
     Route: 065
  35. CYTARABINE [Suspect]
     Indication: BURKITT'S LYMPHOMA
     Route: 065
     Dates: start: 20070206
  36. CYTARABINE [Suspect]
     Route: 065
     Dates: end: 20070509
  37. EUCERIN [Concomitant]
     Route: 061
  38. ZOFRAN [Concomitant]
     Dosage: AS NECESSARY
     Route: 048
  39. VINCRISTINE [Suspect]
     Indication: BURKITT'S LYMPHOMA
     Route: 065
  40. ETOPOSIDE [Suspect]
     Route: 065
  41. CYTARABINE [Suspect]
     Route: 065
  42. NEXIUM [Concomitant]
     Dosage: 7AM
     Route: 048
  43. DIFLUCAN [Concomitant]
     Route: 042
  44. BACTRIM [Concomitant]
     Dosage: MON, WED, FRI
     Route: 048
  45. ZOFRAN [Concomitant]
     Dosage: AS NECESSARY
     Route: 042
  46. VINCRISTINE [Suspect]
     Route: 065
     Dates: end: 20070509
  47. METHOTREXATE [Suspect]
     Route: 042
     Dates: start: 20070206
  48. METHOTREXATE [Suspect]
     Route: 042
     Dates: end: 20070509
  49. IFOSFAMIDE [Suspect]
     Route: 065
  50. ANALAPRIL [Concomitant]
     Route: 048
  51. METOPROLOL SUCCINATE [Concomitant]
     Route: 048
  52. REGLAN [Concomitant]
     Dosage: AS NECESSARY
     Route: 042
  53. NARCAN [Concomitant]
     Route: 042
  54. SODIUM BICARBONATE [Concomitant]
     Route: 042
  55. MAGNESIUM SULFATE [Concomitant]
     Route: 042
  56. CYCLOPHOSPHAMIDE [Suspect]
     Indication: BURKITT'S LYMPHOMA
     Route: 065
     Dates: end: 20070509
  57. ETOPOSIDE [Suspect]
     Route: 065
  58. LEUCOVORIN CALCIUM [Concomitant]
     Route: 042
  59. COMPAZINE [Concomitant]
     Dosage: AS NECESSARY
     Route: 042
  60. TRAZODONE HCL [Concomitant]
     Dosage: AS NECESSARY
     Route: 048

REACTIONS (3)
  - LEUKOPENIA [None]
  - THROMBOCYTOPENIA [None]
  - LEFT VENTRICULAR DYSFUNCTION [None]
